FAERS Safety Report 10461513 (Version 1)
Quarter: 2014Q3

REPORT INFORMATION
  Report Type: Spontaneous
  Country: US (occurrence: None)
  Receive Date: 20140916
  Receipt Date: 20140916
  Transmission Date: 20150326
  Serious: Yes (Other)
  Sender: FDA-Public Use
  Company Number: 2013-US-001990

PATIENT
  Age: 46 Year
  Sex: Female
  Weight: 56.7 kg

DRUGS (17)
  1. PRILOSEC (OMEPRAZOLE) [Concomitant]
     Active Substance: OMEPRAZOLE MAGNESIUM
  2. PENNSAID (DICLOFENAC SODIUM) [Concomitant]
  3. NASONEX [Concomitant]
     Active Substance: MOMETASONE FUROATE
  4. PROVIGIL [Suspect]
     Active Substance: MODAFINIL
     Indication: PRODUCT USED FOR UNKNOWN INDICATION
     Route: 048
     Dates: end: 2013
  5. VITAMIN C [Concomitant]
     Active Substance: ASCORBIC ACID
  6. ARICEPT [Concomitant]
     Active Substance: DONEPEZIL HYDROCHLORIDE
  7. VALTREX [Concomitant]
     Active Substance: VALACYCLOVIR HYDROCHLORIDE
  8. MAGNESIUM [Concomitant]
     Active Substance: MAGNESIUM
  9. DEXEDRINE [Concomitant]
     Active Substance: DEXTROAMPHETAMINE SULFATE
  10. PIROXICAM (PIROXICAM) [Concomitant]
  11. MULTIVITAMIN (VITAMINS NOS) [Concomitant]
     Active Substance: VITAMINS
  12. BIOTIN [Concomitant]
     Active Substance: BIOTIN
  13. CLINDAMYCIN [Concomitant]
     Active Substance: CLINDAMYCIN\CLINDAMYCIN PHOSPHATE
  14. POTASSIUM (POTASSIUM BICARBONATE, POTASSIUM CHLORIDE) [Concomitant]
  15. XYREM [Suspect]
     Active Substance: SODIUM OXYBATE
     Indication: NARCOLEPSY
     Route: 048
     Dates: start: 201110, end: 2011
  16. XYREM [Suspect]
     Active Substance: SODIUM OXYBATE
     Indication: SOMNOLENCE
     Route: 048
     Dates: start: 201110, end: 2011
  17. ALL OTHER THERAPEUTIC PRODUCTS (GASEX) [Concomitant]

REACTIONS (8)
  - Osteonecrosis [None]
  - Feeling drunk [None]
  - Somnolence [None]
  - Face oedema [None]
  - Nasal congestion [None]
  - Drug dose omission [None]
  - Headache [None]
  - Heart rate increased [None]

NARRATIVE: CASE EVENT DATE: 2011
